FAERS Safety Report 15179117 (Version 2)
Quarter: 2018Q3

REPORT INFORMATION
  Report Type: Spontaneous
  Country: US (occurrence: US)
  Receive Date: 20180723
  Receipt Date: 20180817
  Transmission Date: 20181010
  Serious: Yes (Other)
  Sender: FDA-Public Use
  Company Number: US-ROCHE-2158263

PATIENT
  Age: 60 Year
  Sex: Female
  Weight: 77.18 kg

DRUGS (11)
  1. XOLAIR [Suspect]
     Active Substance: OMALIZUMAB
     Route: 058
     Dates: start: 20141205, end: 20170418
  2. BREO ELLIPTA [Concomitant]
     Active Substance: FLUTICASONE FUROATE\VILANTEROL TRIFENATATE
     Dosage: 100?25 MCG/INH INHALATION, 1 PUFF DAILY
     Route: 055
     Dates: start: 20180329
  3. XOLAIR [Suspect]
     Active Substance: OMALIZUMAB
     Indication: CHRONIC SPONTANEOUS URTICARIA
     Dosage: ONGOING: NO
     Route: 058
     Dates: end: 20170418
  4. ZYRTEC [Concomitant]
     Active Substance: CETIRIZINE HYDROCHLORIDE
     Indication: ECZEMA
     Dosage: 1?2 TAB DAILY
     Route: 048
     Dates: start: 20140715
  5. BREO ELLIPTA [Concomitant]
     Active Substance: FLUTICASONE FUROATE\VILANTEROL TRIFENATATE
     Dosage: 200?25 MCG/INH INHALATION, 1 PUFF DAILY
     Route: 065
     Dates: start: 20170809, end: 20171108
  6. MOMETASONE FUROATE. [Concomitant]
     Active Substance: MOMETASONE FUROATE
     Dosage: 50 MCG/ACT FOR 2 PUFFS DAILY EACH SID
     Route: 045
     Dates: start: 20170809, end: 20171108
  7. PROAIR RESPICLICK [Concomitant]
     Active Substance: ALBUTEROL SULFATE
     Dosage: 1?2 PUFF TID PRN
     Route: 055
     Dates: start: 20170809, end: 20171108
  8. XOLAIR [Suspect]
     Active Substance: OMALIZUMAB
     Route: 058
     Dates: start: 20140814, end: 20161213
  9. TRIAMCINOLONE ACETONIDE. [Concomitant]
     Active Substance: TRIAMCINOLONE ACETONIDE
     Route: 061
     Dates: start: 20180717
  10. PROAIR HFA [Concomitant]
     Active Substance: ALBUTEROL SULFATE
     Dosage: 2 PUFFS QD, 108(90 BASE) MCG/ACT INHALATION
     Route: 055
     Dates: start: 20170718
  11. DOXEPIN HCL [Concomitant]
     Active Substance: DOXEPIN HYDROCHLORIDE
     Dosage: 2?4 CAP, HS
     Route: 048
     Dates: start: 20160628, end: 20170418

REACTIONS (5)
  - Neuropathy peripheral [Recovered/Resolved]
  - Pallor [Not Recovered/Not Resolved]
  - Neuropathy peripheral [Recovered/Resolved]
  - Vitiligo [Not Recovered/Not Resolved]
  - Gait inability [Recovered/Resolved]

NARRATIVE: CASE EVENT DATE: 20161213
